APPROVED DRUG PRODUCT: MYCOPHENOLATE MOFETIL
Active Ingredient: MYCOPHENOLATE MOFETIL
Strength: 250MG
Dosage Form/Route: CAPSULE;ORAL
Application: A065520 | Product #001 | TE Code: AB
Applicant: MYLAN PHARMACEUTICALS INC
Approved: May 4, 2009 | RLD: No | RS: No | Type: RX